FAERS Safety Report 22271844 (Version 2)
Quarter: 2023Q2

REPORT INFORMATION
  Report Type: Spontaneous
  Country: PT (occurrence: PT)
  Receive Date: 20230502
  Receipt Date: 20230511
  Transmission Date: 20230722
  Serious: Yes (Other)
  Sender: FDA-Public Use
  Company Number: PT-VIIV HEALTHCARE LIMITED-PT2023EME058634

PATIENT
  Sex: Female

DRUGS (12)
  1. EFAVIRENZ [Suspect]
     Active Substance: EFAVIRENZ
     Indication: HIV infection
     Dosage: UNK
     Dates: start: 2001
  2. NELFINAVIR [Suspect]
     Active Substance: NELFINAVIR
     Indication: HIV infection
     Dosage: UNK
     Dates: start: 1996
  3. GLICLAZIDE [Suspect]
     Active Substance: GLICLAZIDE
     Indication: Product used for unknown indication
     Dosage: UNK
  4. KIVEXA [Suspect]
     Active Substance: ABACAVIR SULFATE\LAMIVUDINE
     Indication: HIV infection
     Dosage: UNK
     Dates: start: 1996
  5. STAVUDINE [Suspect]
     Active Substance: STAVUDINE
     Indication: HIV infection
     Dosage: UNK
     Dates: start: 2001
  6. FENOFIBRATE [Suspect]
     Active Substance: FENOFIBRATE
     Indication: Product used for unknown indication
     Dosage: UNK 267
  7. ZALCITABINE [Suspect]
     Active Substance: ZALCITABINE
     Indication: HIV infection
     Dosage: UNK
     Dates: start: 1996
  8. METFORMIN HYDROCHLORIDE\VILDAGLIPTIN [Suspect]
     Active Substance: METFORMIN HYDROCHLORIDE\VILDAGLIPTIN
     Indication: Product used for unknown indication
     Dosage: UNK 850/50
  9. INDINAVIR [Suspect]
     Active Substance: INDINAVIR
     Indication: HIV infection
     Dosage: UNK
     Dates: start: 1996
  10. INDAPAMIDE [Suspect]
     Active Substance: INDAPAMIDE
     Indication: Product used for unknown indication
     Dosage: UNK 1.5
  11. ZIDOVUDINE [Suspect]
     Active Substance: ZIDOVUDINE
     Indication: HIV infection
     Dosage: UNK
     Dates: start: 1996
  12. LAMIVUDINE [Suspect]
     Active Substance: LAMIVUDINE
     Indication: HIV infection
     Dosage: UNK
     Dates: start: 2001

REACTIONS (7)
  - Diabetes mellitus [Unknown]
  - Gastric disorder [Unknown]
  - Dyslipidaemia [Unknown]
  - Hypertension [Unknown]
  - Lipodystrophy acquired [Unknown]
  - Paraesthesia [Unknown]
  - Hypersensitivity [Unknown]
